FAERS Safety Report 6933625-X (Version None)
Quarter: 2010Q3

REPORT INFORMATION
  Report Type: 
  Country: None (occurrence: None)
  Receive Date: 20100820
  Receipt Date: 20100819
  Transmission Date: 20110219
  Serious: Yes (Disabling)
  Sender: FDA-Public Use
  Company Number: DE-WYE-G06266510

PATIENT
  Sex: Male
  Weight: 70 kg

DRUGS (2)
  1. TORISEL [Suspect]
     Indication: METASTATIC RENAL CELL CARCINOMA
     Route: 042
     Dates: start: 20100519
  2. DIMETINDENE [Concomitant]
     Dates: start: 20100519

REACTIONS (2)
  - PERIPHERAL VASCULAR DISORDER [None]
  - STRESS FRACTURE [None]
